FAERS Safety Report 6581241-4 (Version None)
Quarter: 2010Q1

REPORT INFORMATION
  Report Type: 
  Country: None (occurrence: None)
  Receive Date: 20100203
  Receipt Date: 20100119
  Transmission Date: 20100710
  Serious: Yes (Hospitalization)
  Sender: FDA-Public Use
  Company Number: IT-2010-0112

PATIENT
  Age: 83 Year

DRUGS (1)
  1. NAVELBINE [Suspect]
     Indication: LYMPHOMA
     Dosage: 25 MG./M2 IV
     Route: 042
     Dates: start: 20090618, end: 20090702

REACTIONS (4)
  - BACTERIAL SEPSIS [None]
  - CHOLECYSTITIS ACUTE [None]
  - LEUKOPENIA [None]
  - LIVER FUNCTION TEST ABNORMAL [None]
